FAERS Safety Report 5086758-X (Version None)
Quarter: 2006Q3

REPORT INFORMATION
  Report Type: 
  Country: None (occurrence: None)
  Receive Date: 20060823
  Receipt Date: 20060816
  Transmission Date: 20061208
  Serious: Yes (Other)
  Sender: FDA-Public Use
  Company Number: AT-ROCHE-460068

PATIENT
  Age: 49 Year
  Sex: Female

DRUGS (3)
  1. PEG-INTERFERON ALFA 2A (RO 25-8310) [Suspect]
     Route: 065
  2. RIBAVIRIN [Suspect]
     Route: 065
  3. AMANTADINE HCL [Suspect]
     Route: 065

REACTIONS (3)
  - ANTI-PLATELET ANTIBODY POSITIVE [None]
  - SUDDEN HEARING LOSS [None]
  - TINNITUS [None]
